FAERS Safety Report 10150096 (Version 2)
Quarter: 2014Q2

REPORT INFORMATION
  Report Type: Spontaneous
  Country: CA (occurrence: CA)
  Receive Date: 20140502
  Receipt Date: 20140502
  Transmission Date: 20141212
  Serious: Yes (Other)
  Sender: FDA-Public Use
  Company Number: CA-AMGEN-CANSP2014029645

PATIENT
  Age: 61 Year
  Sex: Male

DRUGS (7)
  1. XGEVA [Suspect]
     Indication: PROSTATE CANCER
     Dosage: 120 MG, UNK
     Route: 065
     Dates: start: 20130304, end: 20140313
  2. ABIRATERONE [Concomitant]
  3. PREDNISONE [Concomitant]
  4. LOPRESSOR [Concomitant]
  5. CALCIUM [Concomitant]
  6. VITAMIN D                          /00107901/ [Concomitant]
  7. ELIGARD [Concomitant]

REACTIONS (2)
  - Paralysis [Recovering/Resolving]
  - Osteonecrosis of jaw [Recovering/Resolving]
